FAERS Safety Report 9645397 (Version 1)
Quarter: 2013Q4

REPORT INFORMATION
  Report Type: Report from Study
  Country: US (occurrence: US)
  Receive Date: 20131025
  Receipt Date: 20131025
  Transmission Date: 20140711
  Serious: Yes (Other)
  Sender: FDA-Public Use
  Company Number: US-ABBVIE-13P-163-1159304-00

PATIENT
  Age: 61 Year
  Sex: Female
  Weight: 98.06 kg

DRUGS (2)
  1. HUMIRA [Suspect]
     Indication: RHEUMATOID ARTHRITIS
     Route: 058
     Dates: start: 2012, end: 201309
  2. HUMIRA [Suspect]
     Route: 058
     Dates: start: 20131016

REACTIONS (4)
  - Rotator cuff syndrome [Not Recovered/Not Resolved]
  - Musculoskeletal pain [Recovering/Resolving]
  - Joint dislocation [Recovered/Resolved]
  - Rotator cuff syndrome [Unknown]
